FAERS Safety Report 7633165-9 (Version None)
Quarter: 2011Q3

REPORT INFORMATION
  Report Type: 
  Country: None (occurrence: None)
  Receive Date: 20110725
  Receipt Date: 20110713
  Transmission Date: 20111222
  Serious: Yes (Other)
  Sender: FDA-Public Use
  Company Number: US-ROCHE-770034

PATIENT
  Sex: Male
  Weight: 77.1 kg

DRUGS (1)
  1. ACCUTANE [Suspect]
     Indication: ACNE
     Route: 065
     Dates: start: 19930401, end: 19930501

REACTIONS (6)
  - UVEITIS [None]
  - INFLAMMATORY BOWEL DISEASE [None]
  - ARTHRALGIA [None]
  - DEPRESSION [None]
  - CROHN'S DISEASE [None]
  - ANAL FISTULA [None]
